FAERS Safety Report 7506081-0 (Version None)
Quarter: 2011Q2

REPORT INFORMATION
  Report Type: 
  Country: None (occurrence: None)
  Receive Date: 20110526
  Receipt Date: 20110523
  Transmission Date: 20111010
  Serious: Yes (Disabling, Other)
  Sender: FDA-Public Use
  Company Number: US-PFIZER INC-2011111912

PATIENT
  Sex: Female
  Weight: 77.098 kg

DRUGS (1)
  1. LIPITOR [Suspect]
     Indication: BLOOD CHOLESTEROL INCREASED
     Dosage: UNK
     Route: 048
     Dates: start: 20030101

REACTIONS (4)
  - PAIN IN EXTREMITY [None]
  - AMNESIA [None]
  - DYSSTASIA [None]
  - JOINT SWELLING [None]
